FAERS Safety Report 4829251-9 (Version None)
Quarter: 2005Q4

REPORT INFORMATION
  Report Type: 
  Country: None (occurrence: None)
  Receive Date: 20051116
  Receipt Date: 20031030
  Transmission Date: 20060501
  Serious: Yes (Other)
  Sender: FDA-Public Use
  Company Number: US-GLAXOSMITHKLINE-A0432706A

PATIENT
  Sex: Female
  Weight: 88.2 kg

DRUGS (3)
  1. PAXIL [Suspect]
     Indication: DEPRESSION
     Dosage: 20MG TWICE PER DAY
     Route: 048
     Dates: start: 19980101, end: 20030101
  2. TRAZODONE HCL [Concomitant]
  3. ZOLOFT [Concomitant]

REACTIONS (7)
  - BREAST FEEDING [None]
  - DIARRHOEA [None]
  - DRUG WITHDRAWAL SYNDROME [None]
  - NORMAL DELIVERY [None]
  - STOMACH DISCOMFORT [None]
  - TEARFULNESS [None]
  - WEIGHT INCREASED [None]
